FAERS Safety Report 17004360 (Version 1)
Quarter: 2019Q4

REPORT INFORMATION
  Report Type: Report from Study
  Country: US (occurrence: US)
  Receive Date: 20191107
  Receipt Date: 20191107
  Transmission Date: 20200122
  Serious: Yes (Other)
  Sender: FDA-Public Use
  Company Number: US-ROCHE-2454113

PATIENT
  Age: 56 Year
  Sex: Female
  Weight: 71.28 kg

DRUGS (1)
  1. OCREVUS [Suspect]
     Active Substance: OCRELIZUMAB
     Indication: RELAPSING MULTIPLE SCLEROSIS
     Dosage: YES
     Route: 042
     Dates: start: 20190404

REACTIONS (8)
  - Pruritus [Recovered/Resolved]
  - Fungal skin infection [Recovered/Resolved]
  - Cyst [Recovered/Resolved]
  - Rash [Recovered/Resolved]
  - Multiple sclerosis relapse [Recovered/Resolved]
  - Hyporeflexia [Recovered/Resolved]
  - Asthenia [Recovered/Resolved]
  - Gait disturbance [Recovered/Resolved]

NARRATIVE: CASE EVENT DATE: 201906
